FAERS Safety Report 17464380 (Version 1)
Quarter: 2020Q1

REPORT INFORMATION
  Report Type: Spontaneous
  Country: CA (occurrence: CA)
  Receive Date: 20200226
  Receipt Date: 20200226
  Transmission Date: 20200409
  Serious: Yes (Other)
  Sender: FDA-Public Use
  Company Number: CA-ANIPHARMA-2020-CA-000219

PATIENT
  Sex: Female

DRUGS (8)
  1. TAMOXIFEN CITRATE. [Suspect]
     Active Substance: TAMOXIFEN CITRATE
     Dosage: 20 MG UNK
     Route: 048
     Dates: start: 200705, end: 200911
  2. CYCLOPHOSPHAMIDE+DOXORUBICIN [Concomitant]
     Dosage: UNKNOWN
     Route: 065
     Dates: end: 20180323
  3. EXEMESTANE. [Concomitant]
     Active Substance: EXEMESTANE
     Dosage: 25 MG UNK
     Route: 048
     Dates: start: 20180415, end: 20200210
  4. IBRANCE [Suspect]
     Active Substance: PALBOCICLIB
     Dosage: UNKNOWN
     Route: 065
  5. PACLITAXEL. [Concomitant]
     Active Substance: PACLITAXEL
     Dosage: UNK
     Route: 065
     Dates: end: 20180323
  6. ANASTROZOLE. [Suspect]
     Active Substance: ANASTROZOLE
     Indication: PRODUCT USED FOR UNKNOWN INDICATION
     Dosage: 1 MG UNK
     Route: 048
     Dates: start: 201009, end: 201711
  7. DOCETAXEL. [Concomitant]
     Active Substance: DOCETAXEL
     Dosage: UNKNOWN
     Route: 065
     Dates: end: 201008
  8. CYCLOPHOSPHAMIDE. [Concomitant]
     Active Substance: CYCLOPHOSPHAMIDE
     Dosage: UNKNOWN
     Route: 065
     Dates: end: 201008

REACTIONS (3)
  - Disease recurrence [Unknown]
  - Disease progression [Unknown]
  - Metastasis [Unknown]
